FAERS Safety Report 5247597-X (Version None)
Quarter: 2007Q1

REPORT INFORMATION
  Report Type: 
  Country: None (occurrence: None)
  Receive Date: 20070223
  Receipt Date: 20070223
  Transmission Date: 20070707
  Serious: Yes (Life-Threatening, Disabling, Other)
  Sender: FDA-Public Use
  Company Number: None

PATIENT
  Sex: Female

DRUGS (2)
  1. TRIAMTERENE AND HYDROCHLOROTHIAZIDE [Suspect]
     Indication: BLOOD PRESSURE INCREASED
     Dosage: 1 CAP EVERY DAY
  2. TRIAMTERENE AND HYDROCHLOROTHIAZIDE [Suspect]
     Indication: SWELLING
     Dosage: 1 CAP EVERY DAY

REACTIONS (6)
  - DYSURIA [None]
  - MUSCULOSKELETAL DISORDER [None]
  - OEDEMA PERIPHERAL [None]
  - PHARMACEUTICAL PRODUCT COMPLAINT [None]
  - PSORIATIC ARTHROPATHY [None]
  - WOUND SECRETION [None]
